FAERS Safety Report 22225626 (Version 1)
Quarter: 2023Q2

REPORT INFORMATION
  Report Type: Spontaneous
  Country: US (occurrence: US)
  Receive Date: 20230418
  Receipt Date: 20230418
  Transmission Date: 20230721
  Serious: No
  Sender: FDA-Public Use
  Company Number: US-Millicent Holdings Ltd.-MILL20230103

PATIENT
  Sex: Female

DRUGS (3)
  1. INTRAROSA [Suspect]
     Active Substance: PRASTERONE
     Indication: Product used for unknown indication
     Dosage: 6.5 MG EVERY DAY AT BEDTIME
     Route: 067
     Dates: start: 2023
  2. INTRAROSA [Suspect]
     Active Substance: PRASTERONE
     Dosage: 6.5 MG EVERY OTHER DAY AT BEDTIME
     Route: 067
     Dates: start: 202301, end: 202302
  3. INTRAROSA [Suspect]
     Active Substance: PRASTERONE
     Dosage: 6.5 MG EVERY DAY AT BEDTIME
     Route: 067
     Dates: start: 2021, end: 202301

REACTIONS (3)
  - Application site discharge [Not Recovered/Not Resolved]
  - Vulvovaginal discomfort [Recovered/Resolved]
  - Inappropriate schedule of product administration [Recovered/Resolved]

NARRATIVE: CASE EVENT DATE: 20210101
